FAERS Safety Report 6152860-4 (Version None)
Quarter: 2009Q2

REPORT INFORMATION
  Report Type: 
  Country: None (occurrence: None)
  Receive Date: 20090413
  Receipt Date: 20090402
  Transmission Date: 20091009
  Serious: Yes (Hospitalization, Other)
  Sender: FDA-Public Use
  Company Number: PHHY2009BR12686

PATIENT
  Sex: Female

DRUGS (5)
  1. DIOVAN HCT [Suspect]
     Dosage: 1 DF AT 10 AM
  2. EXFORGE [Suspect]
     Dosage: 1 DF AT 5 PM
     Dates: start: 20090104
  3. SYNTHROID [Concomitant]
     Indication: HYPOTHYROIDISM
     Dosage: 1 DF IN FASTING
     Route: 048
     Dates: start: 19940101
  4. MAREVAN ^BRITISH DRUG HOUSES^ [Concomitant]
     Indication: ANTICOAGULANT THERAPY
     Dosage: 1 DF, ONCE/SINGLE
     Dates: start: 20090101
  5. CRESTOR [Concomitant]
     Dosage: UNK
     Route: 048
     Dates: start: 20090101

REACTIONS (8)
  - ARTERIAL THROMBOSIS LIMB [None]
  - BLOOD PRESSURE INCREASED [None]
  - FLUID RETENTION [None]
  - HAEMATOMA [None]
  - HAEMATOMA EVACUATION [None]
  - POST PROCEDURAL DISCHARGE [None]
  - POST PROCEDURAL INFECTION [None]
  - THROMBOEMBOLECTOMY [None]
